FAERS Safety Report 20085719 (Version 3)
Quarter: 2022Q1

REPORT INFORMATION
  Report Type: Spontaneous
  Country: HR (occurrence: HR)
  Receive Date: 20211118
  Receipt Date: 20220223
  Transmission Date: 20220423
  Serious: Yes (Other)
  Sender: FDA-Public Use
  Company Number: HR-BAYER-2021A249857

PATIENT

DRUGS (2)
  1. KOGENATE [Suspect]
     Active Substance: ANTIHEMOPHILIC FACTOR, HUMAN RECOMBINANT
     Indication: Haemophilia
     Dosage: 1X WEEKLY AT THE DOSE OF 45 I.U. RFVIII/KG/BODY WEIGHT, RFVIII
     Dates: start: 2007
  2. KOVALTRY [Suspect]
     Active Substance: ANTIHEMOPHILIC FACTOR, HUMAN RECOMBINANT
     Dosage: 3X - 28 I.U./KGBW

REACTIONS (2)
  - Haemorrhage [None]
  - Anti factor VIII antibody positive [None]

NARRATIVE: CASE EVENT DATE: 20070101
